FAERS Safety Report 7511201-8 (Version None)
Quarter: 2011Q2

REPORT INFORMATION
  Report Type: 
  Country: None (occurrence: None)
  Receive Date: 20110531
  Receipt Date: 20110517
  Transmission Date: 20111010
  Serious: Yes (Hospitalization)
  Sender: FDA-Public Use
  Company Number: PHHY2011US43821

PATIENT
  Sex: Female

DRUGS (8)
  1. ZOLPIDEM [Concomitant]
     Dosage: 10 MG, UNK
  2. FUROSEMIDE [Concomitant]
     Dosage: 20 MG, UNK
  3. MAGNESIUM OXIDE [Concomitant]
     Dosage: 400 MG, UNK
  4. HYDROXYZINE [Concomitant]
     Indication: PRURITUS
     Dosage: 10 MG, UNK
  5. EXELON [Suspect]
     Indication: DEMENTIA ALZHEIMER'S TYPE
     Dosage: 4.6 MG  ONE PATCH DAILY
     Route: 062
  6. KLOR-CON [Concomitant]
     Dosage: 10 MG, UNK
  7. OXYCODONE HCL [Concomitant]
  8. OMEPRAZOLE [Concomitant]
     Dosage: 20 MG, UNK

REACTIONS (2)
  - PNEUMONIA [None]
  - BACTERIAL INFECTION [None]
